FAERS Safety Report 5032354-X (Version None)
Quarter: 2006Q2

REPORT INFORMATION
  Report Type: 
  Country: None (occurrence: None)
  Receive Date: 20060508
  Receipt Date: 20050602
  Transmission Date: 20061013
  Serious: Yes (Hospitalization)
  Sender: FDA-Public Use
  Company Number: 232274K05USA

PATIENT
  Age: 35 Year
  Sex: Female
  Weight: 78.4723 kg

DRUGS (5)
  1. REBIF [Suspect]
     Indication: MULTIPLE SCLEROSIS
     Dosage: 44 MCG, 3 IN 1 WEEKS, SUBCUTANEOUS
     Route: 058
     Dates: start: 20041211
  2. PAXIL [Concomitant]
  3. DEPAKOTE ER [Concomitant]
  4. AMBIEN [Concomitant]
  5. DIAZEPAM [Concomitant]

REACTIONS (1)
  - DEPRESSION [None]
